FAERS Safety Report 20132341 (Version 1)
Quarter: 2021Q4

REPORT INFORMATION
  Report Type: Spontaneous
  Country: JP (occurrence: JP)
  Receive Date: 20211130
  Receipt Date: 20211130
  Transmission Date: 20220303
  Serious: Yes (Death)
  Sender: FDA-Public Use
  Company Number: JP-BAYER-2021A256153

PATIENT
  Age: 79 Year
  Sex: Female

DRUGS (3)
  1. ADEMPAS [Suspect]
     Active Substance: RIOCIGUAT
     Indication: Pulmonary hypertension
     Dosage: 7.5MG
     Route: 048
     Dates: end: 202111
  2. WARFARIN [Concomitant]
     Active Substance: WARFARIN
  3. SAMSCA [Concomitant]
     Active Substance: TOLVAPTAN
     Route: 048

REACTIONS (1)
  - Road traffic accident [Fatal]

NARRATIVE: CASE EVENT DATE: 20211101
